FAERS Safety Report 16683939 (Version 1)
Quarter: 2019Q3

REPORT INFORMATION
  Report Type: Spontaneous
  Country: PT (occurrence: PT)
  Receive Date: 20190808
  Receipt Date: 20190808
  Transmission Date: 20191004
  Serious: Yes (Other)
  Sender: FDA-Public Use
  Company Number: PT-MYLANLABS-2019M1073923

PATIENT
  Age: 61 Year
  Sex: Female

DRUGS (2)
  1. OLANZAPINE. [Suspect]
     Active Substance: OLANZAPINE
     Indication: PRODUCT USED FOR UNKNOWN INDICATION
     Dosage: UNK
     Dates: start: 201701
  2. PROPOFOL. [Concomitant]
     Active Substance: PROPOFOL
     Indication: COMPUTERISED TOMOGRAM
     Dosage: UNK

REACTIONS (7)
  - Musculoskeletal stiffness [Recovered/Resolved]
  - Posture abnormal [Recovering/Resolving]
  - Feeding disorder [Recovering/Resolving]
  - Scoliosis [Unknown]
  - Kyphosis [Unknown]
  - Akathisia [Recovering/Resolving]
  - Torticollis [Recovering/Resolving]
